FAERS Safety Report 4701489-0 (Version None)
Quarter: 2005Q2

REPORT INFORMATION
  Report Type: 
  Country: None (occurrence: None)
  Receive Date: 20050627
  Receipt Date: 20050613
  Transmission Date: 20051028
  Serious: Yes (Death, Hospitalization)
  Sender: FDA-Public Use
  Company Number: HQWYE717905MAY04

PATIENT
  Age: 82 Year
  Sex: Female

DRUGS (6)
  1. CORDARONE [Suspect]
     Dosage: 200 MG AS NEEDED, ORAL
     Route: 048
     Dates: start: 20030315, end: 20040325
  2. LASIX [Suspect]
     Dosage: 20 MG 1 X PER 1 DAY, ORAL
     Route: 048
     Dates: start: 20040130, end: 20040325
  3. MEMANTINE (MEMENTINE) [Suspect]
     Dosage: 20 MG 1 X PER 1 DAY, ORAL
     Route: 048
     Dates: start: 20031015, end: 20040325
  4. MOTILIUM [Suspect]
     Dosage: 12 MG 3 X PER 1 DAY, ORAL
     Route: 048
     Dates: start: 20030615, end: 20040325
  5. NEXIUM [Suspect]
     Dosage: 20 MG 1 X PER 1 DAY, ORAL
     Route: 048
     Dates: start: 20031121, end: 20040325
  6. TIAPRIDAL (TIAPRIDE) [Suspect]
     Dosage: ORAL
     Route: 048
     Dates: start: 20031001, end: 20040325

REACTIONS (6)
  - DEMENTIA [None]
  - FEBRILE NEUTROPENIA [None]
  - GENERAL PHYSICAL HEALTH DETERIORATION [None]
  - LUNG DISORDER [None]
  - LUNG INFECTION [None]
  - SEPTIC SHOCK [None]
